FAERS Safety Report 5257230-9 (Version None)
Quarter: 2007Q1

REPORT INFORMATION
  Report Type: 
  Country: None (occurrence: None)
  Receive Date: 20070307
  Receipt Date: 20070228
  Transmission Date: 20070707
  Serious: Yes (Hospitalization)
  Sender: FDA-Public Use
  Company Number: DE-JNJFOC-20070300377

PATIENT
  Age: 39 Year
  Sex: Female

DRUGS (10)
  1. REMICADE [Suspect]
     Indication: PSORIATIC ARTHROPATHY
     Route: 042
  2. DECORTIN [Concomitant]
     Indication: PSORIATIC ARTHROPATHY
     Route: 048
  3. ARAVA [Concomitant]
     Indication: PSORIATIC ARTHROPATHY
     Route: 048
  4. NEXIUM [Concomitant]
     Indication: PROPHYLAXIS
     Route: 048
  5. OSPUR D3 [Concomitant]
     Indication: OSTEOPOROSIS PROPHYLAXIS
     Route: 048
  6. VOLTAREN [Concomitant]
     Route: 048
  7. NOVALGIN [Concomitant]
     Route: 048
  8. AMITRIPTYLINE HCL [Concomitant]
     Route: 048
  9. VASOMOTAL [Concomitant]
     Indication: ASTHMA
     Route: 048
  10. SINGULAIR [Concomitant]
     Indication: ASTHMA
     Route: 048

REACTIONS (6)
  - COLD SWEAT [None]
  - HEADACHE [None]
  - HYPERSENSITIVITY [None]
  - HYPERVENTILATION [None]
  - NAUSEA [None]
  - TACHYCARDIA [None]
